FAERS Safety Report 10514037 (Version 1)
Quarter: 2014Q4

REPORT INFORMATION
  Report Type: Spontaneous
  Country: US (occurrence: US)
  Receive Date: 20141013
  Receipt Date: 20141013
  Transmission Date: 20150528
  Serious: No
  Sender: FDA-Public Use
  Company Number: US-MALLINCKRODT-T201403114

PATIENT

DRUGS (1)
  1. MIXED AMPHETAMINE SALTS [Suspect]
     Active Substance: AMPHETAMINE ASPARTATE\AMPHETAMINE SULFATE\DEXTROAMPHETAMINE SACCHARATE\DEXTROAMPHETAMINE SULFATE
     Indication: ATTENTION DEFICIT/HYPERACTIVITY DISORDER
     Dosage: 20 MG, UNK
     Route: 065

REACTIONS (8)
  - Drug ineffective [Unknown]
  - Irritability [Unknown]
  - Headache [Unknown]
  - Fatigue [Unknown]
  - Acne [Unknown]
  - Wrong technique in drug usage process [Unknown]
  - Confusional state [Unknown]
  - Tremor [Unknown]
